FAERS Safety Report 24547260 (Version 1)
Quarter: 2024Q4

REPORT INFORMATION
  Report Type: Spontaneous
  Country: GB (occurrence: GB)
  Receive Date: 20241025
  Receipt Date: 20241025
  Transmission Date: 20250115
  Serious: Yes (Other)
  Sender: TEVA
  Company Number: None

PATIENT
  Age: 59 Year
  Sex: Female
  Weight: 66 kg

DRUGS (8)
  1. MIRTAZAPINE [Suspect]
     Active Substance: MIRTAZAPINE
     Indication: Oropharyngeal pain
     Route: 048
  2. NITROGLYCERIN [Concomitant]
     Active Substance: NITROGLYCERIN
     Dosage: USE ONE SPRAY..., PUMP
     Route: 060
     Dates: start: 20240805
  3. ACYCLOVIR [Concomitant]
     Active Substance: ACYCLOVIR
     Dosage: ONE FIVE TIMES...
     Dates: start: 20240726
  4. LANSOPRAZOLE [Concomitant]
     Active Substance: LANSOPRAZOLE
     Dates: start: 20240830
  5. CLARITHROMYCIN [Concomitant]
     Active Substance: CLARITHROMYCIN
     Dosage: TWICE
     Dates: start: 20240830
  6. OMEPRAZOLE [Concomitant]
     Active Substance: OMEPRAZOLE
     Dosage: 1-2 CAPSULE,
     Dates: start: 20240726, end: 20240910
  7. AMOXICILLIN [Concomitant]
     Active Substance: AMOXICILLIN
     Dosage: 2 CAPSULES TWIC
     Dates: start: 20240830
  8. RAMIPRIL [Concomitant]
     Active Substance: RAMIPRIL
     Dates: start: 20240906

REACTIONS (4)
  - Dysphagia [Unknown]
  - Skin disorder [Unknown]
  - Depressed mood [Unknown]
  - Restless legs syndrome [Recovered/Resolved]

NARRATIVE: CASE EVENT DATE: 20240726
